FAERS Safety Report 9665517 (Version 1)
Quarter: 2013Q4

REPORT INFORMATION
  Report Type: Spontaneous
  Country: US (occurrence: None)
  Receive Date: 20131031
  Receipt Date: 20131031
  Transmission Date: 20140711
  Serious: Yes (Hospitalization)
  Sender: FDA-Public Use
  Company Number: None

PATIENT
  Age: 82 Year
  Sex: Female
  Weight: 56.2 kg

DRUGS (1)
  1. ALTEPLASE [Suspect]
     Indication: APHASIA
     Route: 042
     Dates: end: 20110820

REACTIONS (3)
  - Retroperitoneal haematoma [None]
  - Blood creatinine increased [None]
  - Haemoglobin decreased [None]
